FAERS Safety Report 8395169-0 (Version None)
Quarter: 2012Q2

REPORT INFORMATION
  Report Type: 
  Country: None (occurrence: None)
  Receive Date: 20120530
  Receipt Date: 20120521
  Transmission Date: 20120825
  Serious: Yes (Other)
  Sender: FDA-Public Use
  Company Number: US-PERRIGO-12US003447

PATIENT
  Age: 58 Year
  Sex: Female
  Weight: 104.31 kg

DRUGS (3)
  1. NAPROXEN SODIUM-PSEUDOEPHEDRINE HYDROCHLORIDE ER 5F7 [Suspect]
     Dosage: 1 TABLET
     Route: 048
     Dates: start: 20120415, end: 20120415
  2. NAPROXEN SODIUM-PSEUDOEPHEDRINE HYDROCHLORIDE ER 5F7 [Suspect]
     Dosage: UNK, UNK
     Route: 048
  3. NAPROXEN SODIUM-PSEUDOEPHEDRINE HYDROCHLORIDE ER 5F7 [Suspect]
     Indication: SINUS CONGESTION
     Dosage: 1 TABLET
     Route: 048
     Dates: start: 20120329, end: 20120329

REACTIONS (5)
  - RASH [None]
  - RESTLESSNESS [None]
  - PRURITUS [None]
  - OEDEMA PERIPHERAL [None]
  - FEELING JITTERY [None]
